FAERS Safety Report 19716579 (Version 1)
Quarter: 2021Q3

REPORT INFORMATION
  Report Type: Spontaneous
  Country: US (occurrence: US)
  Receive Date: 20210819
  Receipt Date: 20210819
  Transmission Date: 20211014
  Serious: No
  Sender: FDA-Public Use
  Company Number: US-CADILA HEALTHCARE LIMITED-US-ZYDUS-056662

PATIENT
  Sex: Male

DRUGS (1)
  1. ENTECAVIR 0.5 MILLIGRAM TABLET [Suspect]
     Active Substance: ENTECAVIR
     Indication: HEPATITIS B
     Dosage: 0.5 MILLIGRAM, QD
     Route: 048
     Dates: start: 2019

REACTIONS (6)
  - Libido decreased [Not Recovered/Not Resolved]
  - Urine abnormality [Recovered/Resolved]
  - Semenuria [Recovered/Resolved]
  - Testicular pain [Not Recovered/Not Resolved]
  - Chromaturia [Recovered/Resolved]
  - Dysuria [Recovered/Resolved]
